FAERS Safety Report 22028289 (Version 1)
Quarter: 2023Q1

REPORT INFORMATION
  Report Type: Spontaneous
  Country: US (occurrence: None)
  Receive Date: 20230223
  Receipt Date: 20230223
  Transmission Date: 20230417
  Serious: No
  Sender: FDA-Public Use
  Company Number: US-ROCHE-3207844

PATIENT
  Sex: Male

DRUGS (18)
  1. NUTROPIN [Suspect]
     Active Substance: SOMATROPIN
     Indication: Adrenal insufficiency
     Dosage: 10 MG/2 ML
     Route: 058
     Dates: start: 20220125
  2. NUTROPIN [Suspect]
     Active Substance: SOMATROPIN
  3. ALLEGRA-D 24 HOUR [Concomitant]
     Active Substance: FEXOFENADINE HYDROCHLORIDE\PSEUDOEPHEDRINE HYDROCHLORIDE
  4. ANDROGEL [Concomitant]
     Active Substance: TESTOSTERONE
  5. ARMODAFINIL [Concomitant]
     Active Substance: ARMODAFINIL
  6. ARTHRITIS PAIN (ACETAMINOPHEN) [Concomitant]
     Active Substance: ACETAMINOPHEN
  7. ASPIRIN [Concomitant]
     Active Substance: ASPIRIN
  8. CALCIUM [Concomitant]
     Active Substance: CALCIUM
  9. CELEBREX [Concomitant]
     Active Substance: CELECOXIB
  10. LEXAPRO [Concomitant]
     Active Substance: ESCITALOPRAM OXALATE
  11. PREDNISONE [Concomitant]
     Active Substance: PREDNISONE
  12. SYNTHROID [Concomitant]
     Active Substance: LEVOTHYROXINE SODIUM
  13. SYSTANE (HYPROMELLOSE 2910 (4000 MPA.S)) [Concomitant]
     Active Substance: HYPROMELLOSE 2910 (4000 MPA.S)
  14. TIZANIDINE [Concomitant]
     Active Substance: TIZANIDINE
  15. TRICOR [Concomitant]
     Active Substance: FENOFIBRATE
  16. VITAMIN D3 [Concomitant]
     Active Substance: CHOLECALCIFEROL
     Dosage: 1000 UNIT
  17. ZANAFLEX [Concomitant]
     Active Substance: TIZANIDINE HYDROCHLORIDE
  18. PROPOXYPHENE [Concomitant]
     Active Substance: PROPOXYPHENE

REACTIONS (2)
  - Off label use [Unknown]
  - No adverse event [Unknown]
